FAERS Safety Report 14241811 (Version 1)
Quarter: 2017Q4

REPORT INFORMATION
  Report Type: Spontaneous
  Country: NL (occurrence: NL)
  Receive Date: 20171201
  Receipt Date: 20171201
  Transmission Date: 20180321
  Serious: Yes (Other)
  Sender: FDA-Public Use
  Company Number: NL-009507513-1711NLD013952

PATIENT
  Sex: Female
  Weight: .54 kg

DRUGS (1)
  1. PREGNYL [Suspect]
     Active Substance: CHORIOGONADOTROPIN ALFA
     Dosage: UNK
     Route: 064

REACTIONS (2)
  - Heterotaxia [Unknown]
  - Foetal exposure during pregnancy [Recovered/Resolved]
